FAERS Safety Report 5895831-5 (Version None)
Quarter: 2008Q3

REPORT INFORMATION
  Report Type: 
  Country: None (occurrence: None)
  Receive Date: 20080924
  Receipt Date: 20080911
  Transmission Date: 20090109
  Serious: Yes (Hospitalization)
  Sender: FDA-Public Use
  Company Number: US-JNJFOC-20080903668

PATIENT
  Sex: Female
  Weight: 68.04 kg

DRUGS (8)
  1. FENTANYL TRANSDERMAL SYSTEM [Suspect]
     Route: 062
  2. FENTANYL TRANSDERMAL SYSTEM [Suspect]
     Route: 062
  3. FENTANYL TRANSDERMAL SYSTEM [Suspect]
     Indication: ABDOMINAL PAIN
     Route: 062
  4. ACETAMINOPHEN [Suspect]
     Indication: DRUG USE FOR UNKNOWN INDICATION
     Route: 048
  5. TRAMADOL HCL [Concomitant]
     Indication: PAIN
     Dosage: AS NEEDED
     Route: 048
  6. MOTRIN [Concomitant]
     Route: 048
  7. OXYCODONE HCL [Concomitant]
     Indication: PAIN
     Route: 048
  8. PREMARIN [Concomitant]
     Indication: HORMONE REPLACEMENT THERAPY

REACTIONS (12)
  - CONVULSION [None]
  - GASTRIC ULCER [None]
  - ILEUS [None]
  - INAPPROPRIATE SCHEDULE OF DRUG ADMINISTRATION [None]
  - INTERVERTEBRAL DISC PROTRUSION [None]
  - NAUSEA [None]
  - NEURALGIA [None]
  - OESOPHAGEAL ULCER [None]
  - SPINAL DISORDER [None]
  - THERAPEUTIC RESPONSE DECREASED [None]
  - WEIGHT INCREASED [None]
  - WRONG TECHNIQUE IN DRUG USAGE PROCESS [None]
